FAERS Safety Report 5195109-1 (Version None)
Quarter: 2006Q4

REPORT INFORMATION
  Report Type: 
  Country: None (occurrence: None)
  Receive Date: 20061229
  Receipt Date: 20061222
  Transmission Date: 20070319
  Serious: Yes (Disabling, Other)
  Sender: FDA-Public Use
  Company Number: DK-ABBOTT-06P-044-0354163-00

PATIENT
  Sex: Male

DRUGS (2)
  1. HUMIRA [Suspect]
     Indication: ARTHRITIS
     Route: 058
  2. HUMIRA [Suspect]
     Route: 058

REACTIONS (3)
  - DERMATITIS [None]
  - DYSPLASTIC NAEVUS SYNDROME [None]
  - PSORIASIS [None]
